FAERS Safety Report 19029475 (Version 1)
Quarter: 2021Q1

REPORT INFORMATION
  Report Type: Report from Study
  Country: RU (occurrence: RU)
  Receive Date: 20210318
  Receipt Date: 20210318
  Transmission Date: 20210420
  Serious: Yes (Other)
  Sender: FDA-Public Use
  Company Number: RU-ASTRAZENECA-2021A111508

PATIENT
  Age: 29368 Day
  Sex: Female
  Weight: 80 kg

DRUGS (4)
  1. VEROSPIRON [Concomitant]
     Active Substance: SPIRONOLACTONE
  2. BRILINTA [Suspect]
     Active Substance: TICAGRELOR
     Indication: MYOCARDIAL INFARCTION
     Route: 048
     Dates: start: 20210227
  3. NOLIPREL [Concomitant]
  4. TRIGRIM [Concomitant]
     Active Substance: TORSEMIDE

REACTIONS (3)
  - Hypertension [Recovering/Resolving]
  - Dizziness [Not Recovered/Not Resolved]
  - Tinnitus [Not Recovered/Not Resolved]

NARRATIVE: CASE EVENT DATE: 20210301
